FAERS Safety Report 10098065 (Version 2)
Quarter: 2014Q2

REPORT INFORMATION
  Report Type: Report from Study
  Country: CN (occurrence: CN)
  Receive Date: 20140423
  Receipt Date: 20140423
  Transmission Date: 20141212
  Serious: Yes (Death)
  Sender: FDA-Public Use
  Company Number: CN-ROCHE-1335234

PATIENT
  Age: 30 Year
  Sex: Male
  Weight: 68 kg

DRUGS (1)
  1. AVASTIN [Suspect]
     Indication: COLORECTAL CANCER METASTATIC
     Route: 042
     Dates: start: 20130110

REACTIONS (2)
  - Disease progression [Fatal]
  - Drug ineffective [Fatal]
